FAERS Safety Report 11276913 (Version 1)
Quarter: 2015Q3

REPORT INFORMATION
  Report Type: Report from Study
  Country: BR (occurrence: BR)
  Receive Date: 20150716
  Receipt Date: 20150716
  Transmission Date: 20151125
  Serious: Yes (Hospitalization)
  Sender: FDA-Public Use
  Company Number: PHHY2015BR082882

PATIENT
  Sex: Male
  Weight: 82 kg

DRUGS (1)
  1. DIOVAN [Suspect]
     Active Substance: VALSARTAN
     Indication: HYPERTENSION
     Dosage: 1 DF, (320/10 MG), QD
     Route: 065
     Dates: end: 201506

REACTIONS (2)
  - Cardiac disorder [Recovering/Resolving]
  - Dyspnoea [Recovering/Resolving]
